FAERS Safety Report 14922009 (Version 1)
Quarter: 2018Q2

REPORT INFORMATION
  Report Type: Spontaneous
  Country: FR (occurrence: FR)
  Receive Date: 20180522
  Receipt Date: 20180522
  Transmission Date: 20180711
  Serious: Yes (Other)
  Sender: FDA-Public Use
  Company Number: FR-MERCK KGAA-2048211

PATIENT
  Age: 68 Year
  Sex: Female

DRUGS (1)
  1. NOVOTHYROX [Suspect]
     Active Substance: LEVOTHYROXINE SODIUM
     Indication: HYPOTHYROIDISM

REACTIONS (19)
  - Radius fracture [Recovering/Resolving]
  - Gamma-glutamyltransferase increased [Recovering/Resolving]
  - Upper limb fracture [Recovering/Resolving]
  - Headache [Recovering/Resolving]
  - Depression [Recovering/Resolving]
  - Hyporeflexia [Recovering/Resolving]
  - Fall [Recovering/Resolving]
  - Impaired driving ability [Recovering/Resolving]
  - Fatigue [Recovering/Resolving]
  - Nausea [Recovering/Resolving]
  - Nervousness [Recovering/Resolving]
  - Blood thyroid stimulating hormone increased [Recovering/Resolving]
  - Hypersensitivity [Recovering/Resolving]
  - Dizziness [Recovering/Resolving]
  - Joint stiffness [Recovering/Resolving]
  - Blood lactate dehydrogenase increased [Recovering/Resolving]
  - Disturbance in attention [Recovering/Resolving]
  - Reading disorder [Recovering/Resolving]
  - Complex regional pain syndrome [Recovering/Resolving]

NARRATIVE: CASE EVENT DATE: 20170311
